FAERS Safety Report 5192282-6 (Version None)
Quarter: 2006Q4

REPORT INFORMATION
  Report Type: 
  Country: None (occurrence: None)
  Receive Date: 20061220
  Receipt Date: 20061212
  Transmission Date: 20070319
  Serious: Yes (Hospitalization)
  Sender: FDA-Public Use
  Company Number: 235847K05USA

PATIENT
  Age: 34 Year
  Sex: Female

DRUGS (6)
  1. REBIF [Suspect]
     Indication: MULTIPLE SCLEROSIS
     Dosage: SEE IMAGE
     Route: 058
     Dates: start: 20020101, end: 20020101
  2. REBIF [Suspect]
     Indication: MULTIPLE SCLEROSIS
     Dosage: SEE IMAGE
     Route: 058
     Dates: start: 20051024
  3. ZOLOFT [Concomitant]
  4. AMANTADINE (AMANTADINE /00055901/) [Concomitant]
  5. PROVIGIL [Suspect]
  6. AVONEX [Concomitant]

REACTIONS (3)
  - AMNESIA [None]
  - FATIGUE [None]
  - GRAND MAL CONVULSION [None]
